FAERS Safety Report 14819463 (Version 1)
Quarter: 2018Q2

REPORT INFORMATION
  Report Type: Spontaneous
  Country: US (occurrence: US)
  Receive Date: 20180427
  Receipt Date: 20180427
  Transmission Date: 20180711
  Serious: No
  Sender: FDA-Public Use
  Company Number: US-BAYER-2018-072717

PATIENT
  Age: 79 Year
  Sex: Male
  Weight: 90.98 kg

DRUGS (1)
  1. MIRALAX [Suspect]
     Active Substance: POLYETHYLENE GLYCOL 3350
     Indication: GASTROINTESTINAL DISORDER
     Dosage: 1 DF, TID
     Route: 048
     Dates: end: 20180412

REACTIONS (7)
  - Diarrhoea [Unknown]
  - Abdominal distension [Recovering/Resolving]
  - Product use issue [Unknown]
  - Abdominal pain upper [Recovering/Resolving]
  - Drug prescribing error [Unknown]
  - Abdominal rigidity [Recovering/Resolving]
  - Drug ineffective [Unknown]
